FAERS Safety Report 17175982 (Version 1)
Quarter: 2019Q4

REPORT INFORMATION
  Report Type: Spontaneous
  Country: US (occurrence: US)
  Receive Date: 20191209
  Receipt Date: 20191209
  Transmission Date: 20200122
  Serious: Yes (Disabling, Other)
  Sender: FDA-Public Use
  Company Number: None

PATIENT
  Age: 54 Year
  Sex: Male
  Weight: 83.25 kg

DRUGS (1)
  1. GADOLINIUM CONTRAST [Suspect]
     Active Substance: GADOLINIUM
     Indication: SPINAL DISORDER
     Dosage: ?          OTHER FREQUENCY:5 TIMES;?
     Route: 008

REACTIONS (7)
  - Disorientation [None]
  - Gadolinium deposition disease [None]
  - Muscle spasms [None]
  - Rash [None]
  - Memory impairment [None]
  - Skin discolouration [None]
  - Pain [None]

NARRATIVE: CASE EVENT DATE: 20171201
